FAERS Safety Report 4376971-9 (Version None)
Quarter: 2004Q2

REPORT INFORMATION
  Report Type: 
  Country: None (occurrence: None)
  Receive Date: 20040614
  Receipt Date: 20040526
  Transmission Date: 20050107
  Serious: Yes (Hospitalization)
  Sender: FDA-Public Use
  Company Number: JP-MERCK-0405USA02186

PATIENT
  Age: 49 Year
  Sex: Male

DRUGS (4)
  1. CORTICOSTEROIDS (UNSPECIFIED) [Concomitant]
     Indication: ASTHMA
     Route: 065
     Dates: start: 20010101
  2. SINGULAIR [Suspect]
     Indication: ASTHMA
     Route: 048
     Dates: start: 20010201, end: 20020401
  3. PRANLUKAST [Suspect]
     Indication: ASTHMA
     Route: 048
     Dates: start: 20000101, end: 20010201
  4. ZAFIRLUKAST [Suspect]
     Indication: ASTHMA
     Route: 048
     Dates: start: 20020401, end: 20020101

REACTIONS (1)
  - ALLERGIC GRANULOMATOUS ANGIITIS [None]
